FAERS Safety Report 5639036-1 (Version None)
Quarter: 2008Q1

REPORT INFORMATION
  Report Type: 
  Country: None (occurrence: None)
  Receive Date: 20080226
  Receipt Date: 20080214
  Transmission Date: 20080703
  Serious: Yes (Other)
  Sender: FDA-Public Use
  Company Number: US-SANOFI-SYNTHELABO-A03200800634

PATIENT
  Age: 79 Year
  Sex: Male

DRUGS (4)
  1. NORVASC [Concomitant]
     Indication: DRUG USE FOR UNKNOWN INDICATION
     Dosage: UNK
     Route: 048
  2. LIPITOR [Concomitant]
     Indication: DRUG USE FOR UNKNOWN INDICATION
     Dosage: UNK
     Route: 048
  3. PLAVIX [Suspect]
     Indication: MYOCARDIAL INFARCTION
     Route: 048
     Dates: start: 20000101, end: 20080125
  4. PLAVIX [Suspect]
     Route: 048
     Dates: start: 20080209

REACTIONS (2)
  - AORTIC ANEURYSM [None]
  - RENAL IMPAIRMENT [None]
